FAERS Safety Report 7469887-2 (Version None)
Quarter: 2011Q2

REPORT INFORMATION
  Report Type: 
  Country: None (occurrence: None)
  Receive Date: 20110510
  Receipt Date: 20101227
  Transmission Date: 20111010
  Serious: Yes (Hospitalization)
  Sender: FDA-Public Use
  Company Number: US-BAYER-201028212NA

PATIENT
  Age: 36 Year
  Sex: Female
  Weight: 63.492 kg

DRUGS (10)
  1. YASMIN [Suspect]
     Indication: MENSTRUAL CYCLE MANAGEMENT
     Dosage: UNK UNK, UNK
     Route: 048
     Dates: start: 20040106, end: 20101117
  2. CELEXA [Concomitant]
     Indication: ANXIETY
     Dosage: 20 MG, QD
     Dates: start: 20000101
  3. DROSPIRENONE AND ETHINYL ESTRADIOL [Suspect]
     Indication: HORMONE SUPPRESSION THERAPY
  4. IBUPROFEN [Concomitant]
     Dosage: 800 MG, UNK
     Dates: start: 20050207
  5. RHINOCORT [Concomitant]
     Dosage: UNK
     Route: 045
     Dates: start: 20020101
  6. YASMIN [Suspect]
     Indication: HORMONE SUPPRESSION THERAPY
  7. NASONEX [Concomitant]
     Indication: MULTIPLE ALLERGIES
     Dosage: UNK
     Dates: start: 20030101
  8. DROSPIRENONE AND ETHINYL ESTRADIOL [Suspect]
  9. YASMIN [Suspect]
     Indication: ORAL CONTRACEPTION
  10. DROSPIRENONE AND ETHINYL ESTRADIOL [Suspect]
     Indication: MENSTRUAL CYCLE MANAGEMENT
     Dosage: UNK UNK, UNK
     Route: 048
     Dates: start: 20040106, end: 20101117

REACTIONS (11)
  - BACK PAIN [None]
  - VOMITING [None]
  - CHOLECYSTITIS ACUTE [None]
  - PROCEDURAL PAIN [None]
  - GALLBLADDER DISORDER [None]
  - PAIN [None]
  - NAUSEA [None]
  - MUSCULOSKELETAL CHEST PAIN [None]
  - CHOLELITHIASIS [None]
  - MEDICAL DIET [None]
  - ANXIETY [None]
